FAERS Safety Report 12727532 (Version 2)
Quarter: 2016Q4

REPORT INFORMATION
  Report Type: Spontaneous
  Country: DE (occurrence: DE)
  Receive Date: 20160909
  Receipt Date: 20161022
  Transmission Date: 20170207
  Serious: Yes (Other)
  Sender: FDA-Public Use
  Company Number: DE-SUN PHARMACEUTICAL INDUSTRIES LTD-2016RR-123304

PATIENT
  Age: 79 Year
  Sex: Male

DRUGS (2)
  1. FLUCONAZOL BASICS 200MG KAPSELN [Suspect]
     Active Substance: FLUCONAZOLE
     Indication: STOMATITIS
     Dosage: 400 MG, DAILY
     Route: 048
     Dates: start: 20160730, end: 20160730
  2. FLUCONAZOL BASICS 200MG KAPSELN [Suspect]
     Active Substance: FLUCONAZOLE
     Dosage: 200 MG, DAILY
     Dates: start: 20160731

REACTIONS (1)
  - Muscle rupture [Not Recovered/Not Resolved]

NARRATIVE: CASE EVENT DATE: 20160731
